FAERS Safety Report 15223336 (Version 5)
Quarter: 2020Q1

REPORT INFORMATION
  Report Type: Spontaneous
  Country: US (occurrence: US)
  Receive Date: 20180731
  Receipt Date: 20200213
  Transmission Date: 20200409
  Serious: Yes (Hospitalization)
  Sender: FDA-Public Use
  Company Number: US-ACTELION-A-NJ2018-176390

PATIENT
  Age: 47 Year
  Sex: Female

DRUGS (5)
  1. TRACLEER [Suspect]
     Active Substance: BOSENTAN
     Indication: PULMONARY ARTERIAL HYPERTENSION
     Dosage: 125 MG, BID
     Route: 048
     Dates: start: 20100105
  2. ADCIRCA [Concomitant]
     Active Substance: TADALAFIL
     Dosage: 40 MG, QD
     Route: 048
     Dates: start: 20141015
  3. REMODULIN [Concomitant]
     Active Substance: TREPROSTINIL
     Dosage: 83 NG/KG, PER MIN
  4. REMODULIN [Concomitant]
     Active Substance: TREPROSTINIL
     Dosage: 73 NG/KG, PER MIN
  5. HEPARIN [Concomitant]
     Active Substance: HEPARIN SODIUM

REACTIONS (8)
  - Pulmonary embolism [Unknown]
  - Pulmonary hypertension [Unknown]
  - International normalised ratio decreased [Unknown]
  - Diarrhoea [Unknown]
  - Cardiac index decreased [Recovering/Resolving]
  - Pain in jaw [Unknown]
  - Device breakage [Unknown]
  - Syncope [Recovered/Resolved]

NARRATIVE: CASE EVENT DATE: 20181126
